FAERS Safety Report 5408705-0 (Version None)
Quarter: 2007Q3

REPORT INFORMATION
  Report Type: 
  Country: None (occurrence: None)
  Receive Date: 20070808
  Receipt Date: 20070803
  Transmission Date: 20080115
  Serious: Yes (Hospitalization)
  Sender: FDA-Public Use
  Company Number: A0668135A

PATIENT
  Age: 63 Year
  Sex: Male

DRUGS (9)
  1. LAMICTAL [Suspect]
     Indication: BIPOLAR DISORDER
     Route: 065
  2. GEODON [Concomitant]
  3. TOPAMAX [Concomitant]
  4. METFORMIN HCL [Concomitant]
  5. LASIX [Concomitant]
  6. VASOTEC [Concomitant]
  7. ATIVAN [Concomitant]
  8. DIVALPROEX SODIUM [Concomitant]
  9. RISPERDAL [Concomitant]

REACTIONS (3)
  - MENTAL DISORDER [None]
  - OEDEMA [None]
  - SCHIZOAFFECTIVE DISORDER [None]
